FAERS Safety Report 23761022 (Version 1)
Quarter: 2024Q2

REPORT INFORMATION
  Report Type: Report from Study
  Country: US (occurrence: US)
  Receive Date: 20240419
  Receipt Date: 20240419
  Transmission Date: 20240716
  Serious: Yes (Hospitalization, Other)
  Sender: FDA-Public Use
  Company Number: US-GILEAD-2024-0669674

PATIENT
  Age: 62 Year
  Sex: Male

DRUGS (11)
  1. AZTREONAM LYSINE [Suspect]
     Active Substance: AZTREONAM LYSINE
     Indication: Cystic fibrosis
     Dosage: 75 MG, TID (INHALE 1 VIAL (75 MG) VIA ALTERA NEBULIZER THREE TIMES DAILY CYCLING 28 DAYS ON 28 DAYS
     Route: 055
  2. AZTREONAM LYSINE [Suspect]
     Active Substance: AZTREONAM LYSINE
     Indication: Pseudomonas infection
  3. DUPIXENT [Concomitant]
     Active Substance: DUPILUMAB
     Dosage: 300MG EVERY OTHER WEEK
  4. CREON [Concomitant]
     Active Substance: PANCRELIPASE AMYLASE\PANCRELIPASE LIPASE\PANCRELIPASE PROTEASE
     Dosage: 2 CAPSULES THREE TIMES DAILY
  5. TOBI [Concomitant]
     Active Substance: TOBRAMYCIN
     Dosage: 4 CAPSULES TWICE DAILY
  6. LANTUS [Concomitant]
     Active Substance: INSULIN GLARGINE
     Dosage: 10 UNITS DAILT
  7. NOVOLOG [Concomitant]
     Active Substance: INSULIN ASPART
     Dosage: 10 UNITS THREE TIMES DAILY
  8. ADVAIR HFA [Concomitant]
     Active Substance: FLUTICASONE PROPIONATE\SALMETEROL XINAFOATE
     Dosage: 2 PUFFS TWICE DAILY
  9. AZITHROMYCIN [Concomitant]
     Active Substance: AZITHROMYCIN
     Dosage: 1 TABLET DAILY
  10. ERGOCALCIFEROL [Concomitant]
     Active Substance: ERGOCALCIFEROL
     Dosage: 1 CAPSULE DAILY
  11. PULMOZYME [Concomitant]
     Active Substance: DORNASE ALFA
     Dosage: 1 VIAL DAILY

REACTIONS (1)
  - Pneumonia [Unknown]
